FAERS Safety Report 22540474 (Version 1)
Quarter: 2023Q2

REPORT INFORMATION
  Report Type: Spontaneous
  Country: US (occurrence: None)
  Receive Date: 20230608
  Receipt Date: 20230608
  Transmission Date: 20230721
  Serious: Yes (Death)
  Sender: FDA-Public Use
  Company Number: None

PATIENT
  Sex: Male

DRUGS (2)
  1. IMFINZI [Suspect]
     Active Substance: DURVALUMAB
     Indication: Hepatocellular carcinoma
     Dosage: OTHER FREQUENCY : DAY 1 OF EACH 28;?
     Route: 042
     Dates: start: 20230510, end: 20230607
  2. IMJUDO [Suspect]
     Active Substance: TREMELIMUMAB-ACTL
     Indication: Hepatocellular carcinoma
     Dosage: OTHER FREQUENCY : DAY 1 OF 28;?
     Route: 042
     Dates: start: 20230510, end: 20230607

REACTIONS (1)
  - Death [None]
